FAERS Safety Report 9890826 (Version 1)
Quarter: 2014Q1

REPORT INFORMATION
  Report Type: Spontaneous
  Country: DK (occurrence: DK)
  Receive Date: 20140212
  Receipt Date: 20140212
  Transmission Date: 20141002
  Serious: Yes (Other)
  Sender: FDA-Public Use
  Company Number: DK-ASTELLAS-2014EU001018

PATIENT
  Sex: Female

DRUGS (5)
  1. TACROLIMUS SYSTEMIC [Suspect]
     Indication: IMMUNOSUPPRESSION
     Dosage: UNK
     Route: 065
  2. TACROLIMUS SYSTEMIC [Suspect]
     Indication: ACUTE GRAFT VERSUS HOST DISEASE
  3. TACROLIMUS SYSTEMIC [Suspect]
     Indication: CHRONIC GRAFT VERSUS HOST DISEASE
  4. PREDNISOLONE [Suspect]
     Indication: CHRONIC GRAFT VERSUS HOST DISEASE
     Dosage: UNK
     Route: 065
  5. RITUXIMAB [Concomitant]
     Dosage: UNK
     Route: 065

REACTIONS (6)
  - Off label use [Unknown]
  - Off label use [Unknown]
  - Epstein-Barr virus infection [Recovered/Resolved]
  - Post transplant lymphoproliferative disorder [Recovered/Resolved]
  - Hypogammaglobulinaemia [Unknown]
  - Post transplant lymphoproliferative disorder [Recovered/Resolved]
